FAERS Safety Report 13432823 (Version 3)
Quarter: 2017Q2

REPORT INFORMATION
  Report Type: Spontaneous
  Country: JP (occurrence: JP)
  Receive Date: 20170412
  Receipt Date: 20170518
  Transmission Date: 20170830
  Serious: Yes (Hospitalization)
  Sender: FDA-Public Use
  Company Number: JP-ROCHE-1916507

PATIENT
  Age: 68 Year
  Sex: Female

DRUGS (2)
  1. TAMIFLU [Suspect]
     Active Substance: OSELTAMIVIR PHOSPHATE
     Indication: INFLUENZA
     Dosage: MOST RECENT DOSE: 26/MAR/2017
     Route: 048
     Dates: start: 20170322, end: 20170326
  2. EDIROL [Concomitant]
     Active Substance: ELDECALCITOL
     Dosage: DOSAGE IS UNCERTAIN.
     Route: 048
     Dates: start: 20161007

REACTIONS (2)
  - Pneumonia [Recovered/Resolved]
  - Loss of consciousness [Recovered/Resolved]

NARRATIVE: CASE EVENT DATE: 20170329
